FAERS Safety Report 25670224 (Version 1)
Quarter: 2025Q3

REPORT INFORMATION
  Report Type: Spontaneous
  Country: EU (occurrence: EU)
  Receive Date: 20250812
  Receipt Date: 20250812
  Transmission Date: 20251021
  Serious: Yes (Disabling, Other)
  Sender: CELLTRION
  Company Number: EU-ROCHE-10000295947

PATIENT

DRUGS (1)
  1. BEVACIZUMAB [Suspect]
     Active Substance: BEVACIZUMAB
     Indication: Product used for unknown indication

REACTIONS (6)
  - Neuropathy peripheral [Unknown]
  - Insomnia [Unknown]
  - Hallucination [Unknown]
  - Hypertension [Unknown]
  - Alopecia [Unknown]
  - Constipation [Unknown]
